FAERS Safety Report 25861906 (Version 1)
Quarter: 2025Q3

REPORT INFORMATION
  Report Type: Report from Study
  Country: US (occurrence: US)
  Receive Date: 20250930
  Receipt Date: 20250930
  Transmission Date: 20251020
  Serious: Yes (Hospitalization)
  Sender: ACADIA PHARMACEUTICALS
  Company Number: US-ACADIA PHARMACEUTICALS INC.-ACA-2025-PIM-010731

PATIENT
  Age: 72 Year
  Sex: Male

DRUGS (19)
  1. NUPLAZID [Suspect]
     Active Substance: PIMAVANSERIN TARTRATE
     Indication: Delusion
     Dosage: 34 MILLIGRAM, QD
     Route: 048
     Dates: start: 20250425
  2. NUPLAZID [Suspect]
     Active Substance: PIMAVANSERIN TARTRATE
     Indication: Hallucination
  3. NUPLAZID [Suspect]
     Active Substance: PIMAVANSERIN TARTRATE
     Indication: Parkinson^s disease
  4. CARVEDILOL [Concomitant]
     Active Substance: CARVEDILOL
  5. HUMALOG [Concomitant]
     Active Substance: INSULIN LISPRO
  6. ENTACAPONE [Concomitant]
     Active Substance: ENTACAPONE
  7. SINEMET [Concomitant]
     Active Substance: CARBIDOPA\LEVODOPA
  8. BUMEX [Concomitant]
     Active Substance: BUMETANIDE
  9. OLOPATADINE [Concomitant]
     Active Substance: OLOPATADINE
  10. MIRALAX [Concomitant]
     Active Substance: POLYETHYLENE GLYCOL 3350
  11. LETROZOLE [Concomitant]
     Active Substance: LETROZOLE
  12. MORNIFLUMATE [Concomitant]
     Active Substance: MORNIFLUMATE
  13. ACRIVASTINE [Concomitant]
     Active Substance: ACRIVASTINE
  14. MELATONIN [Concomitant]
     Active Substance: MELATONIN
  15. FISH OIL [Concomitant]
     Active Substance: FISH OIL
  16. SEROQUEL [Concomitant]
     Active Substance: QUETIAPINE FUMARATE
  17. SOD BICARBONATE [Concomitant]
  18. ZOFRAN [Concomitant]
     Active Substance: ONDANSETRON HYDROCHLORIDE
  19. CLARITHROMYCIN [Concomitant]
     Active Substance: CLARITHROMYCIN

REACTIONS (1)
  - Urinary tract infection [Unknown]

NARRATIVE: CASE EVENT DATE: 20250919
